FAERS Safety Report 9101752 (Version 2)
Quarter: 2013Q1

REPORT INFORMATION
  Report Type: Spontaneous
  Country: JP (occurrence: JP)
  Receive Date: 20130218
  Receipt Date: 20130228
  Transmission Date: 20140127
  Serious: Yes (Other)
  Sender: FDA-Public Use
  Company Number: JP-ELI_LILLY_AND_COMPANY-JP201302003475

PATIENT
  Age: 71 Year
  Sex: Female

DRUGS (2)
  1. ALIMTA [Suspect]
     Indication: LUNG ADENOCARCINOMA
     Dosage: UNK
     Route: 042
  2. CARBOPLATIN [Concomitant]
     Indication: LUNG ADENOCARCINOMA
     Route: 042

REACTIONS (1)
  - Inappropriate antidiuretic hormone secretion [Recovered/Resolved]
